FAERS Safety Report 11339984 (Version 1)
Quarter: 2015Q3

REPORT INFORMATION
  Report Type: Spontaneous
  Country: US (occurrence: None)
  Receive Date: 20150803
  Receipt Date: 20150803
  Transmission Date: 20151125
  Serious: Yes (Death)
  Sender: FDA-Public Use
  Company Number: INS201507-000320

PATIENT
  Age: 36 Year
  Sex: Male

DRUGS (1)
  1. SUBSYS [Suspect]
     Active Substance: FENTANYL
     Indication: BREAKTHROUGH PAIN

REACTIONS (2)
  - Malignant neoplasm progression [None]
  - Pancreatic carcinoma [None]

NARRATIVE: CASE EVENT DATE: 20150615
